FAERS Safety Report 17076748 (Version 2)
Quarter: 2019Q4

REPORT INFORMATION
  Report Type: Report from Study
  Country: US (occurrence: US)
  Receive Date: 20191126
  Receipt Date: 20191212
  Transmission Date: 20200122
  Serious: No
  Sender: FDA-Public Use
  Company Number: US-SA-2019SA321202

PATIENT
  Age: 42 Year
  Sex: Female

DRUGS (1)
  1. AGALSIDASE BETA [Suspect]
     Active Substance: AGALSIDASE BETA
     Indication: FABRY^S DISEASE
     Dosage: DOSE: 100(UNIT NOT REPORTED); FREQUENCY:Q2
     Route: 042
     Dates: start: 20190425

REACTIONS (1)
  - Exposure during pregnancy [Unknown]
